FAERS Safety Report 4559767-4 (Version None)
Quarter: 2005Q1

REPORT INFORMATION
  Report Type: 
  Country: None (occurrence: None)
  Receive Date: 20050124
  Receipt Date: 20050114
  Transmission Date: 20050727
  Serious: Yes (Other)
  Sender: FDA-Public Use
  Company Number: DE-MERCK-0501USA03113

PATIENT

DRUGS (1)
  1. ELSPAR [Suspect]
     Indication: ACUTE LYMPHOCYTIC LEUKAEMIA
     Route: 065

REACTIONS (5)
  - CEREBRAL ARTERY EMBOLISM [None]
  - CEREBRAL THROMBOSIS [None]
  - HAEMORRHAGE INTRACRANIAL [None]
  - HAEMORRHAGIC INFARCTION [None]
  - PERIPHERAL EMBOLISM [None]
